FAERS Safety Report 11248749 (Version 2)
Quarter: 2015Q3

REPORT INFORMATION
  Report Type: Spontaneous
  Country: US (occurrence: US)
  Receive Date: 20150708
  Receipt Date: 20150722
  Transmission Date: 20151125
  Serious: No
  Sender: FDA-Public Use
  Company Number: US-ELI_LILLY_AND_COMPANY-US201008007163

PATIENT
  Age: 54 Year
  Sex: Female

DRUGS (5)
  1. HUMATROPE [Suspect]
     Active Substance: SOMATROPIN
     Dosage: 0.02 MG, DAILY (1/D)
     Dates: start: 201006
  2. TESTOSTERONE. [Concomitant]
     Active Substance: TESTOSTERONE
  3. HUMATROPE [Suspect]
     Active Substance: SOMATROPIN
     Dosage: 0.02 MG, QOD
     Dates: start: 201006, end: 201007
  4. PREMARIN [Concomitant]
     Active Substance: ESTROGENS, CONJUGATED
  5. PROZAC [Suspect]
     Active Substance: FLUOXETINE HYDROCHLORIDE
     Dosage: 10 MG, UNKNOWN
     Dates: start: 2010

REACTIONS (8)
  - Cataract [Unknown]
  - Injection site bruising [Unknown]
  - Somnolence [Recovered/Resolved]
  - Sinusitis [Unknown]
  - Depressed mood [Recovering/Resolving]
  - Hypersomnia [Recovered/Resolved]
  - Drug ineffective [Unknown]
  - Headache [Recovered/Resolved]

NARRATIVE: CASE EVENT DATE: 201006
